FAERS Safety Report 4792487-X (Version None)
Quarter: 2005Q4

REPORT INFORMATION
  Report Type: 
  Country: None (occurrence: None)
  Receive Date: 20051010
  Receipt Date: 20050927
  Transmission Date: 20060501
  Serious: Yes (Hospitalization)
  Sender: FDA-Public Use
  Company Number: FR-JNJFOC-20051001287

PATIENT
  Age: 46 Year
  Sex: Female

DRUGS (1)
  1. IXPRIM [Suspect]
     Dosage: 1 DOSE = 1 TABLET
     Route: 048

REACTIONS (2)
  - DRUG DISPENSING ERROR [None]
  - HYPOGLYCAEMIA [None]
